FAERS Safety Report 6753461 (Version 1)
Quarter: 2020Q3

REPORT INFORMATION
  Report Type: Report from Study
  Country: US (occurrence: US)
  Receive Date: 20080911
  Receipt Date: 20080911
  Transmission Date: 20201104
  Serious: Yes (Other)
  Sender: FDA-Public Use
  Company Number: US-ROCHE-584191

PATIENT
  Age: 80 Year
  Sex: Female

DRUGS (7)
  1. ARIMIDEX [Concomitant]
     Active Substance: ANASTROZOLE
  2. MULTIPLE UNSPECIFIED MEDICATIONS [Concomitant]
     Active Substance: UNSPECIFIED INGREDIENT
     Dosage: DRUG REPORTED AS: MULTIPLE MEDICATIONS.
  3. UNSPECIFIED INGREDIENT [Concomitant]
     Active Substance: UNSPECIFIED INGREDIENT
  4. IRON [Concomitant]
     Active Substance: IRON
  5. LIPITOR [Concomitant]
     Active Substance: ATORVASTATIN CALCIUM
  6. IBANDRONIC ACID. [Suspect]
     Active Substance: IBANDRONIC ACID
     Indication: OSTEOPOROSIS
     Route: 048
     Dates: start: 2007
  7. FLUOROURACIL. [Concomitant]
     Active Substance: FLUOROURACIL

REACTIONS (1)
  - Colon cancer [Unknown]
